FAERS Safety Report 7158006-8 (Version None)
Quarter: 2010Q4

REPORT INFORMATION
  Report Type: 
  Country: None (occurrence: None)
  Receive Date: 20101214
  Receipt Date: 20100416
  Transmission Date: 20110411
  Serious: No
  Sender: FDA-Public Use
  Company Number: US-ASTRAZENECA-2010SE16975

PATIENT
  Age: 62 Year
  Sex: Female
  Weight: 88.5 kg

DRUGS (5)
  1. CRESTOR [Suspect]
     Indication: BLOOD CHOLESTEROL
     Route: 048
     Dates: start: 20100101, end: 20100201
  2. CRESTOR [Suspect]
     Route: 048
     Dates: start: 20100201
  3. CARVEDILOL [Concomitant]
  4. PROTONIX [Concomitant]
  5. VITAMINS [Concomitant]

REACTIONS (3)
  - MALAISE [None]
  - MYALGIA [None]
  - WRONG TECHNIQUE IN DRUG USAGE PROCESS [None]
